FAERS Safety Report 13381841 (Version 1)
Quarter: 2017Q1

REPORT INFORMATION
  Report Type: Spontaneous
  Country: US (occurrence: US)
  Receive Date: 20170329
  Receipt Date: 20170329
  Transmission Date: 20170429
  Serious: Yes (Hospitalization)
  Sender: FDA-Public Use
  Company Number: None

PATIENT
  Age: 77 Year
  Sex: Female
  Weight: 66.6 kg

DRUGS (14)
  1. RECLAST [Suspect]
     Active Substance: ZOLEDRONIC ACID
     Indication: OSTEOPOROSIS
     Dosage: ?          OTHER FREQUENCY:ANNUALLY;?
     Route: 042
     Dates: start: 20170327
  2. BYETTA [Concomitant]
     Active Substance: EXENATIDE
  3. IRON [Concomitant]
     Active Substance: IRON
  4. VITAMIN D [Concomitant]
     Active Substance: CHOLECALCIFEROL
  5. INDAPAMIDE. [Concomitant]
     Active Substance: INDAPAMIDE
  6. OCCUVITE [Concomitant]
  7. SIMVASTIN [Concomitant]
     Active Substance: SIMVASTATIN
  8. LOW DOSE ASPIRIN [Concomitant]
     Active Substance: ASPIRIN
  9. CALCIUM [Concomitant]
     Active Substance: CALCIUM
  10. VITAMIN B [Concomitant]
     Active Substance: VITAMIN B
  11. ACTOS PLUS MEFORMIN [Concomitant]
  12. TEKTURNA [Concomitant]
     Active Substance: ALISKIREN HEMIFUMARATE
  13. VITAMIN C [Concomitant]
     Active Substance: ASCORBIC ACID
  14. XALATHAN [Concomitant]

REACTIONS (5)
  - Hypotension [None]
  - Presyncope [None]
  - Dizziness [None]
  - Middle insomnia [None]
  - Feeling cold [None]

NARRATIVE: CASE EVENT DATE: 20170328
